FAERS Safety Report 23184847 (Version 7)
Quarter: 2024Q3

REPORT INFORMATION
  Report Type: Report from Study
  Country: US (occurrence: US)
  Receive Date: 20231115
  Receipt Date: 20240823
  Transmission Date: 20241017
  Serious: Yes (Other)
  Sender: ABBVIE
  Company Number: US-ABBVIE-5489756

PATIENT
  Sex: Female

DRUGS (3)
  1. SKYRIZI [Suspect]
     Active Substance: RISANKIZUMAB-RZAA
     Indication: Psoriasis
     Dosage: LAST ADMIN DATE 2023
     Route: 058
     Dates: start: 20230331
  2. SKYRIZI [Suspect]
     Active Substance: RISANKIZUMAB-RZAA
     Route: 058
     Dates: start: 20230418
  3. SKYRIZI [Suspect]
     Active Substance: RISANKIZUMAB-RZAA
     Route: 058

REACTIONS (13)
  - Coronary artery bypass [Recovered/Resolved]
  - Eye swelling [Unknown]
  - Swelling face [Unknown]
  - Psoriasis [Not Recovered/Not Resolved]
  - Fatigue [Not Recovered/Not Resolved]
  - Skin ulcer [Unknown]
  - Skin burning sensation [Recovered/Resolved]
  - Pneumonia [Not Recovered/Not Resolved]
  - Joint dislocation [Unknown]
  - Psoriasis [Recovered/Resolved]
  - Hip arthroplasty [Unknown]
  - Heart rate abnormal [Unknown]
  - Arthralgia [Not Recovered/Not Resolved]

NARRATIVE: CASE EVENT DATE: 20230101
